FAERS Safety Report 20441071 (Version 2)
Quarter: 2022Q1

REPORT INFORMATION
  Report Type: Report from Study
  Country: US (occurrence: US)
  Receive Date: 20220208
  Receipt Date: 20220217
  Transmission Date: 20220423
  Serious: No
  Sender: FDA-Public Use
  Company Number: US-BEH-2022141185

PATIENT
  Age: 65 Year
  Sex: Female
  Weight: 57.596 kg

DRUGS (1)
  1. HIZENTRA [Suspect]
     Active Substance: HUMAN IMMUNOGLOBULIN G
     Indication: Chronic inflammatory demyelinating polyradiculoneuropathy
     Dosage: 11 GRAM, QW
     Route: 058
     Dates: start: 20211229, end: 20220119

REACTIONS (9)
  - Fatigue [Recovered/Resolved]
  - Weight increased [Recovered/Resolved]
  - Malaise [Recovered/Resolved]
  - Asthenia [Recovered/Resolved]
  - Chest pain [Recovered/Resolved]
  - Palpitations [Recovered/Resolved]
  - Asthenia [Recovered/Resolved]
  - No adverse event [Unknown]
  - Insurance issue [Unknown]

NARRATIVE: CASE EVENT DATE: 20211229
